FAERS Safety Report 8228961-3 (Version None)
Quarter: 2012Q1

REPORT INFORMATION
  Report Type: 
  Country: None (occurrence: None)
  Receive Date: 20120322
  Receipt Date: 20120313
  Transmission Date: 20120608
  Serious: Yes (Death, Other)
  Sender: FDA-Public Use
  Company Number: US-COVIDIEN/TYCO HEALTHCARE/MALLINCKRODT-T201201044

PATIENT
  Age: 48 Year
  Sex: Female

DRUGS (3)
  1. METHYLIN [Suspect]
  2. BUPRENORPHINE [Suspect]
  3. ADDERALL 5 [Suspect]

REACTIONS (3)
  - HAEMATEMESIS [None]
  - ABDOMINAL PAIN UPPER [None]
  - CIRCULATORY COLLAPSE [None]
